FAERS Safety Report 8575269-2 (Version None)
Quarter: 2012Q3

REPORT INFORMATION
  Report Type: 
  Country: None (occurrence: None)
  Receive Date: 20120807
  Receipt Date: 20120723
  Transmission Date: 20120928
  Serious: Yes (Death, Other)
  Sender: FDA-Public Use
  Company Number: FR-PFIZER INC-2012170158

PATIENT
  Age: 15 Year
  Sex: Female

DRUGS (12)
  1. COLISTIN [Concomitant]
     Dosage: UNK
  2. VFEND [Interacting]
     Indication: BRONCHOPULMONARY ASPERGILLOSIS
     Dosage: 200 MG, 2X/DAY
     Route: 042
     Dates: start: 20120514, end: 20120525
  3. CIPROFLOXACIN HCL [Suspect]
     Dosage: UNK
     Dates: start: 20120528, end: 20120604
  4. VANCOMYCIN HCL [Interacting]
     Dosage: 1 G, 2X/DAY
     Route: 042
     Dates: start: 20120522, end: 20120603
  5. CLAVULANATE POTASSIUM [Suspect]
     Dosage: 1 DF, 3X/DAY
     Route: 042
     Dates: start: 20120528, end: 20120604
  6. GENTAMICIN [Suspect]
     Dosage: UNK
     Route: 042
     Dates: start: 20120526, end: 20120530
  7. GENTAMICIN [Concomitant]
     Route: 048
  8. NEUPOGEN [Concomitant]
     Dosage: UNK
     Dates: start: 20120401, end: 20120607
  9. BACTRIM [Suspect]
     Indication: PROPHYLAXIS
     Dosage: 1 DF, THREE TIMES PER WEEK
     Route: 042
     Dates: start: 20120401
  10. VFEND [Interacting]
     Dosage: 200 MG, 2X/DAY
     Route: 048
     Dates: end: 20120531
  11. CANCIDAS [Suspect]
     Dosage: UNK
     Route: 042
     Dates: start: 20120528, end: 20120530
  12. NEORAL [Interacting]
     Dosage: 100 MG, 2X/DAY
     Route: 048
     Dates: start: 20120423, end: 20120531

REACTIONS (3)
  - RENAL FAILURE ACUTE [None]
  - OVERDOSE [None]
  - DRUG INTERACTION [None]
